FAERS Safety Report 9707733 (Version 1)
Quarter: 2013Q4

REPORT INFORMATION
  Report Type: Spontaneous
  Country: JP (occurrence: JP)
  Receive Date: 20131125
  Receipt Date: 20131125
  Transmission Date: 20140711
  Serious: Yes (Other)
  Sender: FDA-Public Use
  Company Number: PHHY2013JP135719

PATIENT
  Sex: Female

DRUGS (1)
  1. NEORAL [Suspect]
     Route: 048
     Dates: start: 201310

REACTIONS (1)
  - Blindness transient [Recovered/Resolved]
